FAERS Safety Report 5354101-4 (Version None)
Quarter: 2007Q2

REPORT INFORMATION
  Report Type: 
  Country: None (occurrence: None)
  Receive Date: 20070521
  Receipt Date: 20070207
  Transmission Date: 20071010
  Serious: No
  Sender: FDA-Public Use
  Company Number: WAES 0702USA01071

PATIENT
  Age: 78 Year
  Sex: Female

DRUGS (4)
  1. JANUVIA [Suspect]
     Indication: DIABETES MELLITUS
     Dosage: SEE IMAGE
     Route: 048
  2. ACTOS [Concomitant]
  3. AMARYL [Concomitant]
  4. METFORMIN HCL [Concomitant]

REACTIONS (2)
  - CONSTIPATION [None]
  - DRUG ADMINISTRATION ERROR [None]
